FAERS Safety Report 15119440 (Version 1)
Quarter: 2018Q3

REPORT INFORMATION
  Report Type: Report from Study
  Country: JP (occurrence: JP)
  Receive Date: 20180709
  Receipt Date: 20180709
  Transmission Date: 20181010
  Serious: Yes (Other)
  Sender: FDA-Public Use
  Company Number: JP-ACCORD-069294

PATIENT
  Age: 88 Year
  Sex: Male

DRUGS (1)
  1. DONEPEZIL/DONEPEZIL HYDROCHLORIDE [Suspect]
     Active Substance: DONEPEZIL HYDROCHLORIDE
     Indication: DEMENTIA

REACTIONS (4)
  - Depressed level of consciousness [Recovering/Resolving]
  - Somnolence [None]
  - Eating disorder [Recovering/Resolving]
  - Asthenia [None]
